FAERS Safety Report 4454397-7 (Version None)
Quarter: 2004Q3

REPORT INFORMATION
  Report Type: 
  Country: None (occurrence: None)
  Receive Date: 20040921
  Receipt Date: 20040909
  Transmission Date: 20050211
  Serious: Yes (Hospitalization)
  Sender: FDA-Public Use
  Company Number: DE-JNJFOC-20040808781

PATIENT
  Age: 58 Year
  Sex: Male

DRUGS (1)
  1. INFLIXIMAB [Suspect]
     Indication: ANKYLOSING SPONDYLITIS
     Route: 042

REACTIONS (11)
  - ANAEMIA [None]
  - HIV TEST POSITIVE [None]
  - HYPERGAMMAGLOBULINAEMIA BENIGN MONOCLONAL [None]
  - LYMPHADENOPATHY [None]
  - LYMPHOCYTOSIS [None]
  - MARROW HYPERPLASIA [None]
  - MULTIPLE MYELOMA [None]
  - NIGHT SWEATS [None]
  - PLASMACYTOSIS [None]
  - THROMBOCYTOPENIA [None]
  - WEIGHT DECREASED [None]
